FAERS Safety Report 21824847 (Version 1)
Quarter: 2023Q1

REPORT INFORMATION
  Report Type: Spontaneous
  Country: US (occurrence: US)
  Receive Date: 20230105
  Receipt Date: 20230105
  Transmission Date: 20230417
  Serious: No
  Sender: FDA-Public Use
  Company Number: US-ELI_LILLY_AND_COMPANY-US202211012930

PATIENT
  Age: 43 Year
  Sex: Male

DRUGS (1)
  1. TALTZ [Suspect]
     Active Substance: IXEKIZUMAB
     Indication: Product used for unknown indication
     Dosage: 80 MG, OTHER
     Route: 058

REACTIONS (2)
  - Inappropriate schedule of product administration [Unknown]
  - Localised infection [Unknown]

NARRATIVE: CASE EVENT DATE: 20221129
